FAERS Safety Report 7037394-7 (Version None)
Quarter: 2010Q4

REPORT INFORMATION
  Report Type: 
  Country: None (occurrence: None)
  Receive Date: 20101011
  Receipt Date: 20100929
  Transmission Date: 20110411
  Serious: Yes (Other)
  Sender: FDA-Public Use
  Company Number: US-PFIZER INC-2010123971

PATIENT
  Sex: Female

DRUGS (2)
  1. LYRICA [Suspect]
     Indication: BONE DISORDER
     Dosage: 50 MG, 3X/DAY
     Route: 048
     Dates: start: 20100910, end: 20100915
  2. LYRICA [Suspect]
     Indication: NEURALGIA

REACTIONS (2)
  - NEURALGIA [None]
  - PARAESTHESIA [None]
